FAERS Safety Report 8272591-4 (Version None)
Quarter: 2012Q2

REPORT INFORMATION
  Report Type: 
  Country: None (occurrence: None)
  Receive Date: 20120410
  Receipt Date: 20120402
  Transmission Date: 20120825
  Serious: Yes (Other)
  Sender: FDA-Public Use
  Company Number: US-ALLERGAN-1202041US

PATIENT
  Age: 19 Year
  Sex: Female

DRUGS (3)
  1. DOXYCYCLINE [Concomitant]
     Indication: ACNE
     Dosage: 150 MG, QHS
     Route: 048
     Dates: start: 20100522, end: 20120210
  2. ACZONE [Suspect]
     Indication: ACNE
     Dosage: UNK
     Route: 061
     Dates: start: 20120115, end: 20120201
  3. EPIDUO GEL [Concomitant]
     Indication: ACNE
     Dosage: UNK
     Route: 061
     Dates: start: 20100815

REACTIONS (3)
  - OEDEMA PERIPHERAL [None]
  - PANIC ATTACK [None]
  - SYNCOPE [None]
